FAERS Safety Report 18179355 (Version 1)
Quarter: 2020Q3

REPORT INFORMATION
  Report Type: Spontaneous
  Country: US (occurrence: US)
  Receive Date: 20200820
  Receipt Date: 20200820
  Transmission Date: 20201103
  Serious: No
  Sender: FDA-Public Use
  Company Number: US-TEVA-2020-US-1815712

PATIENT

DRUGS (1)
  1. METOPROLOL ER SUCCINATE TEVA [Suspect]
     Active Substance: METOPROLOL SUCCINATE
     Dosage: FORM OF ADMIN: EXTENDED RELEASE
     Route: 065

REACTIONS (2)
  - Dry mouth [Unknown]
  - Product substitution issue [Unknown]
